FAERS Safety Report 10465680 (Version 3)
Quarter: 2014Q4

REPORT INFORMATION
  Report Type: Spontaneous
  Country: FR (occurrence: FR)
  Receive Date: 20140919
  Receipt Date: 20141106
  Transmission Date: 20150528
  Serious: Yes (Other)
  Sender: FDA-Public Use
  Company Number: FR-GE HEALTHCARE MEDICAL DIAGNOSTICS-OSCN-PR-1409S-0144

PATIENT
  Age: 56 Year
  Sex: Female
  Weight: 70 kg

DRUGS (2)
  1. OMNISCAN [Suspect]
     Active Substance: GADODIAMIDE
     Indication: DIAGNOSTIC PROCEDURE
  2. OMNISCAN [Suspect]
     Active Substance: GADODIAMIDE
     Indication: HEADACHE
     Route: 042
     Dates: start: 20140829, end: 20140829

REACTIONS (4)
  - Malaise [Recovered/Resolved]
  - Hypotension [Recovered/Resolved]
  - Abdominal pain [Recovered/Resolved]
  - Erythema [Recovered/Resolved]

NARRATIVE: CASE EVENT DATE: 201408
